FAERS Safety Report 6195822-3 (Version None)
Quarter: 2009Q2

REPORT INFORMATION
  Report Type: 
  Country: None (occurrence: None)
  Receive Date: 20090520
  Receipt Date: 20090514
  Transmission Date: 20091009
  Serious: Yes (Other)
  Sender: FDA-Public Use
  Company Number: US-BAYER-200916300NA

PATIENT
  Age: 30 Year
  Sex: Female
  Weight: 80 kg

DRUGS (3)
  1. MIRENA [Suspect]
     Indication: CONTRACEPTION
     Dosage: CONTINUOUS
     Route: 015
     Dates: start: 20090218, end: 20090218
  2. MIRENA [Suspect]
     Route: 015
     Dates: start: 20090226
  3. VITAMIN TAB [Concomitant]
     Indication: POSTPARTUM STATE
     Route: 048

REACTIONS (1)
  - IUD MIGRATION [None]
